FAERS Safety Report 6369438-X (Version None)
Quarter: 2009Q3

REPORT INFORMATION
  Report Type: 
  Country: None (occurrence: None)
  Receive Date: 20090923
  Receipt Date: 20090914
  Transmission Date: 20100115
  Serious: Yes (Hospitalization)
  Sender: FDA-Public Use
  Company Number: US-BIOGENIDEC-2009BI024595

PATIENT
  Age: 54 Year
  Sex: Female

DRUGS (9)
  1. TYSABRI [Suspect]
     Indication: MULTIPLE SCLEROSIS
     Route: 042
     Dates: start: 20070524
  2. SYNTHROID [Concomitant]
     Indication: HYPOTHYROIDISM
  3. MULTI-VITAMIN [Concomitant]
     Indication: ROUTINE HEALTH MAINTENANCE
  4. FISH OIL [Concomitant]
     Indication: ROUTINE HEALTH MAINTENANCE
  5. SOY LECITHIN [Concomitant]
     Indication: ROUTINE HEALTH MAINTENANCE
  6. VITAMIN B COMPLEX CAP [Concomitant]
     Indication: ROUTINE HEALTH MAINTENANCE
  7. PRIMROSE [Concomitant]
     Indication: ROUTINE HEALTH MAINTENANCE
  8. IRON [Concomitant]
     Indication: ROUTINE HEALTH MAINTENANCE
  9. ASCORBIC ACID [Concomitant]
     Indication: ROUTINE HEALTH MAINTENANCE

REACTIONS (2)
  - BILIARY DYSKINESIA [None]
  - GASTROENTERITIS VIRAL [None]
